FAERS Safety Report 4366716-0 (Version None)
Quarter: 2004Q2

REPORT INFORMATION
  Report Type: 
  Country: None (occurrence: None)
  Receive Date: 20040527
  Receipt Date: 20040520
  Transmission Date: 20050107
  Serious: Yes (Hospitalization)
  Sender: FDA-Public Use
  Company Number: AU-MERCK-0405AUS00090

PATIENT
  Age: 75 Year
  Sex: Female

DRUGS (6)
  1. ATENOLOL [Concomitant]
     Route: 065
  2. CARBIDOPA AND LEVODOPA [Concomitant]
     Route: 065
  3. DANAZOL [Suspect]
     Route: 065
  4. PERGOLIDE MESYLATE [Concomitant]
     Route: 065
  5. PREDNISONE [Concomitant]
     Route: 065
  6. ZOCOR [Suspect]
     Route: 048

REACTIONS (4)
  - DRUG INTERACTION [None]
  - HEPATIC FAILURE [None]
  - RENAL FAILURE [None]
  - RHABDOMYOLYSIS [None]
